FAERS Safety Report 5194106-X (Version None)
Quarter: 2006Q4

REPORT INFORMATION
  Report Type: 
  Country: None (occurrence: None)
  Receive Date: 20061222
  Receipt Date: 20061218
  Transmission Date: 20070319
  Serious: Yes (Death, Other)
  Sender: FDA-Public Use
  Company Number: 163-21880-06120804

PATIENT
  Age: 84 Year
  Sex: Male

DRUGS (11)
  1. REVLIMID [Suspect]
     Indication: REFRACTORY ANAEMIA
     Dosage: 10 MG, 1 IN 1 D, ORAL
     Route: 048
     Dates: start: 20060501, end: 20060601
  2. XALATAN (LATANOPROST) (SOLUTION) [Concomitant]
  3. MEGACE (MEGESTROL ACETATE) (SUSPENSION) [Concomitant]
  4. Z-BEC (Z-BEC) [Concomitant]
  5. PROTONIX [Concomitant]
  6. LEVOXYL [Concomitant]
  7. DIOVAN [Concomitant]
  8. CARDURA [Concomitant]
  9. DETROL LA [Concomitant]
  10. MULTIVITAMIN [Concomitant]
  11. MAGNESIUM OXIDE (MAGNESIUM OXIDE) [Concomitant]

REACTIONS (4)
  - DISEASE PROGRESSION [None]
  - MYELODYSPLASTIC SYNDROME [None]
  - PLATELET COUNT DECREASED [None]
  - REFRACTORY ANAEMIA [None]
